FAERS Safety Report 24778889 (Version 2)
Quarter: 2025Q3

REPORT INFORMATION
  Report Type: Spontaneous
  Country: US (occurrence: US)
  Receive Date: 20241226
  Receipt Date: 20250809
  Transmission Date: 20251021
  Serious: Yes (Other)
  Sender: ALEXION PHARMACEUTICALS
  Company Number: US-AstraZeneca-202412USA017920US

PATIENT
  Age: 64 Year
  Sex: Female

DRUGS (4)
  1. CRESTOR [Suspect]
     Active Substance: ROSUVASTATIN CALCIUM
     Indication: Hyperlipidaemia
  2. BOSUTINIB [Concomitant]
     Active Substance: BOSUTINIB
     Indication: Chronic myeloid leukaemia
     Route: 065
     Dates: start: 20240304, end: 20240320
  3. BOSUTINIB [Concomitant]
     Active Substance: BOSUTINIB
     Route: 065
  4. ALDACTONE [Concomitant]
     Active Substance: SPIRONOLACTONE

REACTIONS (6)
  - Chronic myeloid leukaemia [Unknown]
  - Pleural effusion [Unknown]
  - Abdominal distension [Unknown]
  - Neuralgia [Unknown]
  - Aspiration pleural cavity [Unknown]
  - Ovarian cancer stage III [Unknown]

NARRATIVE: CASE EVENT DATE: 20240304
